FAERS Safety Report 5426301-6 (Version None)
Quarter: 2007Q3

REPORT INFORMATION
  Report Type: 
  Country: None (occurrence: None)
  Receive Date: 20070827
  Receipt Date: 20070816
  Transmission Date: 20080115
  Serious: Yes (Hospitalization)
  Sender: FDA-Public Use
  Company Number: US-ROCHE-511217

PATIENT
  Age: 38 Year
  Sex: Male
  Weight: 85 kg

DRUGS (7)
  1. PEG-INTERFERON ALFA 2A (RO 25-8310) [Suspect]
     Route: 058
     Dates: start: 20070117
  2. RIBAVIRIN [Suspect]
     Dosage: STRENGTH, FORM, ROUTE AND FREQUENCY AS PER PROTOCOL
     Route: 048
     Dates: start: 20070117
  3. 1 CONCOMITANT DRUG [Concomitant]
     Dosage: REPORTED AS HIV CONCOMITANT MEDS
     Dates: end: 20070801
  4. HYDROCHLOROTHIAZIDE [Concomitant]
     Dates: start: 20060504
  5. LISINOPRIL [Concomitant]
     Dates: start: 20070307
  6. METOPROLOL SUCCINATE [Concomitant]
     Dates: start: 20060504
  7. TRICOR [Concomitant]
     Dates: start: 20070307

REACTIONS (2)
  - ASTHENIA [None]
  - DEHYDRATION [None]
